FAERS Safety Report 9678487 (Version 2)
Quarter: 2013Q4

REPORT INFORMATION
  Report Type: Spontaneous
  Country: US (occurrence: US)
  Receive Date: 20131108
  Receipt Date: 20131108
  Transmission Date: 20140711
  Serious: Yes (Disabling)
  Sender: FDA-Public Use
  Company Number: US-IPSEN BIOPHARMACEUTICALS, INC.-2013-4708

PATIENT
  Age: 57 Year
  Sex: Female
  Weight: 61 kg

DRUGS (6)
  1. DYSPORT [Suspect]
     Indication: SKIN WRINKLING
     Dosage: 80 UNITS
     Route: 030
     Dates: start: 20131017, end: 20131017
  2. DYSPORT [Suspect]
     Indication: SKIN WRINKLING
  3. DYSPORT [Suspect]
     Indication: SKIN WRINKLING
  4. DYSPORT [Suspect]
     Indication: OFF LABEL USE
  5. PROTONIX [Concomitant]
     Indication: PRODUCT USED FOR UNKNOWN INDICATION
     Dosage: NOT REPORTED
     Route: 065
  6. LIPITOR [Concomitant]
     Indication: PRODUCT USED FOR UNKNOWN INDICATION
     Dosage: NOT REPORTED
     Route: 065

REACTIONS (3)
  - Eyelid ptosis [Not Recovered/Not Resolved]
  - Wrong technique in drug usage process [Unknown]
  - Overdose [Unknown]
